FAERS Safety Report 11943935 (Version 1)
Quarter: 2016Q1

REPORT INFORMATION
  Report Type: Spontaneous
  Country: US (occurrence: US)
  Receive Date: 20160125
  Receipt Date: 20160125
  Transmission Date: 20160526
  Serious: No
  Sender: FDA-Public Use
  Company Number: US-UNITED THERAPEUTICS-UNT-2015-014761

PATIENT
  Age: 53 Year
  Sex: Female
  Weight: 57.6 kg

DRUGS (2)
  1. LETAIRIS [Concomitant]
     Active Substance: AMBRISENTAN
     Indication: PRODUCT USED FOR UNKNOWN INDICATION
     Route: 065
  2. REMODULIN [Suspect]
     Active Substance: TREPROSTINIL
     Indication: PULMONARY ARTERIAL HYPERTENSION
     Dosage: 0.046 ?G/KG/MIN, CONTINUING
     Route: 058
     Dates: start: 20140902

REACTIONS (8)
  - Pain [Unknown]
  - Infusion site oedema [Unknown]
  - Headache [Unknown]
  - Infusion site erythema [Unknown]
  - Malaise [Unknown]
  - Dizziness [Unknown]
  - Infusion site pain [Unknown]
  - Nausea [Unknown]

NARRATIVE: CASE EVENT DATE: 201511
